FAERS Safety Report 6280268-X (Version None)
Quarter: 2009Q3

REPORT INFORMATION
  Report Type: 
  Country: None (occurrence: None)
  Receive Date: 20090723
  Receipt Date: 20090717
  Transmission Date: 20100115
  Serious: Yes (Hospitalization, Other)
  Sender: FDA-Public Use
  Company Number: GB-ASTRAZENECA-2006GB00484

PATIENT
  Sex: Female

DRUGS (4)
  1. SEROQUEL [Suspect]
     Indication: PSYCHOTIC DISORDER
     Route: 048
     Dates: start: 20051219, end: 20060118
  2. RISPERDAL [Suspect]
     Indication: PSYCHOTIC DISORDER
     Dosage: INCREASED UP TO 3MG A DAY
     Route: 048
     Dates: start: 20051119, end: 20051219
  3. RISPERDAL [Suspect]
     Route: 048
     Dates: end: 20051219
  4. LEVOTHYROXINE SODIUM [Concomitant]

REACTIONS (6)
  - HEPATITIS [None]
  - HEPATOMEGALY [None]
  - JAUNDICE [None]
  - MANIA [None]
  - PRURITUS [None]
  - RASH [None]
